FAERS Safety Report 10602277 (Version 1)
Quarter: 2014Q4

REPORT INFORMATION
  Report Type: Spontaneous
  Country: OM (occurrence: OM)
  Receive Date: 20141124
  Receipt Date: 20141124
  Transmission Date: 20150529
  Serious: Yes (Other)
  Sender: FDA-Public Use
  Company Number: OM-PFIZER INC-2014318079

PATIENT
  Age: 19 Year
  Sex: Male
  Weight: 60 kg

DRUGS (5)
  1. PHENYTOIN SODIUM. [Suspect]
     Active Substance: PHENYTOIN SODIUM
     Indication: STATUS EPILEPTICUS
     Dosage: 1,000 MG OVER 20 MIN, LOADING DOSE
  2. PHENYTOIN SODIUM. [Suspect]
     Active Substance: PHENYTOIN SODIUM
     Dosage: 300 MG, DAILY, MAINTENANCE DOSE
  3. DIAZEPAM. [Concomitant]
     Active Substance: DIAZEPAM
     Indication: STATUS EPILEPTICUS
     Dosage: 10 MG, UNK
  4. MANNITOL. [Concomitant]
     Active Substance: MANNITOL
     Indication: STATUS EPILEPTICUS
     Dosage: UNK 200ML OVER 8 HOURS
  5. DEXAMETHASONE. [Concomitant]
     Active Substance: DEXAMETHASONE
     Indication: STATUS EPILEPTICUS
     Dosage: 8 MG, UNK
     Route: 040

REACTIONS (8)
  - Xanthopsia [Recovered/Resolved]
  - Vision blurred [Recovered/Resolved]
  - Drug level increased [Recovered/Resolved]
  - Colour blindness [Recovered/Resolved]
  - Nystagmus [Recovered/Resolved]
  - Ataxia [Recovered/Resolved]
  - Retinal toxicity [Recovering/Resolving]
  - Ocular toxicity [Recovered/Resolved]
